FAERS Safety Report 5106630-6 (Version None)
Quarter: 2006Q3

REPORT INFORMATION
  Report Type: 
  Country: None (occurrence: None)
  Receive Date: 20060918
  Receipt Date: 20060905
  Transmission Date: 20061208
  Serious: Yes (Death, Life-Threatening, Hospitalization)
  Sender: FDA-Public Use
  Company Number: 2006AP04128

PATIENT
  Age: 23011 Day
  Sex: Male

DRUGS (13)
  1. IRESSA [Suspect]
     Indication: SQUAMOUS CELL CARCINOMA
     Route: 048
     Dates: start: 20060801, end: 20060904
  2. CISPLATIN [Suspect]
     Indication: SQUAMOUS CELL CARCINOMA
     Route: 042
     Dates: start: 20060807, end: 20060904
  3. RADIOTHERAPY [Suspect]
     Indication: SQUAMOUS CELL CARCINOMA
     Dosage: 2 GY 5 DAYS A WEEK
     Dates: start: 20060807, end: 20060904
  4. DOLASETRON [Concomitant]
     Indication: PROPHYLAXIS OF NAUSEA AND VOMITING
     Route: 042
     Dates: start: 20060808
  5. ZOFRAN WAFERS [Concomitant]
     Indication: NAUSEA
     Route: 048
     Dates: start: 20060829
  6. LIGNOCAINE [Concomitant]
     Indication: MUCOSAL INFLAMMATION
     Route: 048
     Dates: start: 20060818
  7. LOPERAMIDE [Concomitant]
     Indication: DIARRHOEA
     Route: 048
     Dates: start: 20060601
  8. MAXALON [Concomitant]
     Indication: PROPHYLAXIS OF NAUSEA AND VOMITING
     Route: 048
     Dates: start: 20060727
  9. FENTANYL [Concomitant]
     Indication: MUCOSAL INFLAMMATION
     Route: 061
     Dates: start: 20060902
  10. DEXAMETHASONE TAB [Concomitant]
     Indication: PROPHYLAXIS OF NAUSEA AND VOMITING
     Route: 048
     Dates: start: 20060809
  11. AMOXICILLIN/CLAVULANIC ACID [Concomitant]
     Indication: ABSCESS
     Dosage: 875 MG/ 125 MG BID
     Route: 048
     Dates: start: 20060801
  12. ENDONE [Concomitant]
     Indication: MUCOSAL INFLAMMATION
     Route: 048
     Dates: start: 20060829
  13. MOUTHWASH POWDER [Concomitant]
     Route: 048
     Dates: start: 20060808

REACTIONS (3)
  - FEBRILE NEUTROPENIA [None]
  - PNEUMONIA [None]
  - RENAL FAILURE ACUTE [None]
